FAERS Safety Report 7228086-X (Version None)
Quarter: 2011Q1

REPORT INFORMATION
  Report Type: 
  Country: None (occurrence: None)
  Receive Date: 20110114
  Receipt Date: 20110107
  Transmission Date: 20110831
  Serious: Yes (Other)
  Sender: FDA-Public Use
  Company Number: US-BAYER-2011-002445

PATIENT
  Sex: Male

DRUGS (7)
  1. LEVITRA [Suspect]
     Dosage: 20 MG, ONCE
     Route: 048
     Dates: start: 20110106
  2. DETROL LA [Concomitant]
  3. TOPROL-XL [Concomitant]
  4. ALDACTONE [Concomitant]
  5. ZOCOR [Concomitant]
  6. LEVITRA [Suspect]
     Dosage: UNK
     Route: 048
  7. BENICAR HCT [Concomitant]

REACTIONS (3)
  - SKELETAL INJURY [None]
  - FALL [None]
  - DIZZINESS [None]
